FAERS Safety Report 20150812 (Version 1)
Quarter: 2021Q4

REPORT INFORMATION
  Report Type: Report from Study
  Country: IT (occurrence: IT)
  Receive Date: 20211206
  Receipt Date: 20211206
  Transmission Date: 20220303
  Serious: Yes (Death, Other)
  Sender: FDA-Public Use
  Company Number: IT-NOVARTISPH-NVSC2021IT276519

PATIENT
  Age: 78 Year
  Sex: Male

DRUGS (1)
  1. CAPMATINIB [Suspect]
     Active Substance: CAPMATINIB
     Indication: Non-small cell lung cancer metastatic
     Dosage: 200 MG, BID
     Route: 048
     Dates: start: 20210901, end: 20211027

REACTIONS (8)
  - Death [Fatal]
  - Non-small cell lung cancer metastatic [Unknown]
  - Malignant neoplasm progression [Unknown]
  - Pancreatic disorder [Unknown]
  - Muscle disorder [Unknown]
  - Splenic lesion [Unknown]
  - Central nervous system lesion [Unknown]
  - Therapy partial responder [Unknown]

NARRATIVE: CASE EVENT DATE: 20211022
